FAERS Safety Report 8379567-7 (Version None)
Quarter: 2012Q2

REPORT INFORMATION
  Report Type: 
  Country: None (occurrence: None)
  Receive Date: 20120523
  Receipt Date: 20120416
  Transmission Date: 20120825
  Serious: No
  Sender: FDA-Public Use
  Company Number: US-JNJFOC-20120407811

PATIENT
  Sex: Male
  Weight: 58.97 kg

DRUGS (6)
  1. INVEGA [Suspect]
     Indication: SCHIZOPHRENIA
     Route: 048
     Dates: start: 20120301, end: 20120401
  2. INVEGA [Suspect]
     Indication: PSYCHOTIC DISORDER
     Route: 048
     Dates: start: 20120301, end: 20120401
  3. LAMICTAL [Suspect]
     Indication: PSYCHOTIC DISORDER
     Dosage: ONCE AT NIGHT
     Route: 048
     Dates: start: 20120301
  4. RISPERDAL [Suspect]
     Indication: PSYCHOTIC DISORDER
     Route: 048
     Dates: start: 20110101, end: 20120101
  5. LAMICTAL [Suspect]
     Indication: SCHIZOPHRENIA
     Dosage: ONCE AT NIGHT
     Route: 048
     Dates: start: 20120301
  6. RISPERDAL [Suspect]
     Indication: SCHIZOPHRENIA
     Route: 048
     Dates: start: 20110101, end: 20120101

REACTIONS (4)
  - SEDATION [None]
  - FEELING ABNORMAL [None]
  - ABNORMAL BEHAVIOUR [None]
  - PSYCHOTIC DISORDER [None]
